FAERS Safety Report 6942834-5 (Version None)
Quarter: 2010Q3

REPORT INFORMATION
  Report Type: 
  Country: None (occurrence: None)
  Receive Date: 20100826
  Receipt Date: 20100812
  Transmission Date: 20110219
  Serious: Yes (Disabling, Other)
  Sender: FDA-Public Use
  Company Number: IT-BAYER-201036031GPV

PATIENT
  Age: 52 Year
  Sex: Male

DRUGS (1)
  1. NEXAVAR [Suspect]
     Indication: HEPATIC NEOPLASM MALIGNANT NON-RESECTABLE
     Route: 048
     Dates: start: 20091001, end: 20100722

REACTIONS (2)
  - BLINDNESS [None]
  - PERIPHLEBITIS [None]
